FAERS Safety Report 19974677 (Version 1)
Quarter: 2021Q4

REPORT INFORMATION
  Report Type: Spontaneous
  Country: DE (occurrence: DE)
  Receive Date: 20211020
  Receipt Date: 20211020
  Transmission Date: 20220303
  Serious: Yes (Life-Threatening, Hospitalization, Congenital Anomaly, Other)
  Sender: FDA-Public Use
  Company Number: DE-EMBRYOTOX-202107855-B

PATIENT
  Age: 1 Day
  Sex: Female

DRUGS (6)
  1. VALSARTAN [Suspect]
     Active Substance: VALSARTAN
     Indication: Hypertension
     Dosage: 80 MILLIGRAM DAILY; ADDITIONAL INFO : 0. - 28.4. GESTATIONAL WEEK
     Route: 064
  2. INSULIN NOS [Concomitant]
     Active Substance: INSULIN NOS
     Indication: Type 1 diabetes mellitus
     Dosage: LONG-TERM ACTING INSULIN , ADDITIONAL INFO : 0. - 29.2. GESTATIONAL WEEK
     Route: 064
     Dates: start: 20201026, end: 20210519
  3. NOVORAPID [Concomitant]
     Active Substance: INSULIN ASPART
     Indication: Type 1 diabetes mellitus
     Dosage: ADDITIONAL INFO : 0. - 29.2. GESTATIONAL WEEK
     Route: 064
     Dates: start: 20201026, end: 20210519
  4. LEVOTHYROXINE SODIUM [Concomitant]
     Active Substance: LEVOTHYROXINE SODIUM
     Indication: Hypothyroidism
     Dosage: 125 [UG/D ]/ SIX TIMES PER WEEK , UNIT DOSE : 750 MCG , ADDITIONAL INFO : TRIMESTER: LONG TERM EXPOS
     Route: 064
  5. FOLIC ACID [Concomitant]
     Active Substance: FOLIC ACID
     Indication: Prophylaxis of neural tube defect
     Dosage: ADDITIONAL INFO : 6. - 29.2. GESTATIONAL WEEK
     Route: 064
  6. METHYLDOPA [Concomitant]
     Active Substance: METHYLDOPA
     Indication: Hypertension
     Dosage: ADDITIONAL INFO : 29. - 29.2. GESTATIONAL WEEK
     Route: 064

REACTIONS (16)
  - Joint contracture [Recovering/Resolving]
  - Dysmorphism [Not Recovered/Not Resolved]
  - Hyperuricaemia [Unknown]
  - Renal hypertension [Not Recovered/Not Resolved]
  - Neonatal respiratory distress syndrome [Recovered/Resolved]
  - Ventricular septal defect [Not Recovered/Not Resolved]
  - Bradycardia neonatal [Recovered/Resolved]
  - Atrial septal defect [Unknown]
  - Hyperkalaemia [Recovered/Resolved]
  - Patent ductus arteriosus [Not Recovered/Not Resolved]
  - Selective eating disorder [Recovered/Resolved]
  - Cardiac septal hypertrophy [Not Recovered/Not Resolved]
  - Microcephaly [Not Recovered/Not Resolved]
  - Renal failure [Not Recovered/Not Resolved]
  - Retinopathy [Not Recovered/Not Resolved]
  - Foetal exposure during pregnancy [Unknown]

NARRATIVE: CASE EVENT DATE: 20201026
